FAERS Safety Report 15225052 (Version 1)
Quarter: 2018Q3

REPORT INFORMATION
  Report Type: Spontaneous
  Country: DE (occurrence: DE)
  Receive Date: 20180801
  Receipt Date: 20180801
  Transmission Date: 20181010
  Serious: Yes (Life-Threatening, Other)
  Sender: FDA-Public Use
  Company Number: DE-MACLEODS PHARMACEUTICALS US LTD-MAC2018015714

PATIENT

DRUGS (3)
  1. METHYLPHENIDATE HYDROCHLORIDE. [Interacting]
     Active Substance: METHYLPHENIDATE HYDROCHLORIDE
     Indication: ATTENTION DEFICIT/HYPERACTIVITY DISORDER
     Dosage: 40 MILLIGRAM, QD,SLOW RELEASE (STEADY DOSE SINCE SEVERAL YEARS).
     Route: 065
  2. QUETIAPINE 50 MG [Suspect]
     Active Substance: QUETIAPINE
     Indication: AGITATION
     Dosage: 50 MILLIGRAM, QD, MAXIMUM DAILY DOSE, 50 MG
     Route: 065
  3. QUETIAPINE 50 MG [Interacting]
     Active Substance: QUETIAPINE
     Indication: RESTLESSNESS
     Dosage: 25 UNK, FIRST DAY
     Route: 065

REACTIONS (4)
  - Blood creatine phosphokinase increased [Recovering/Resolving]
  - Aspartate aminotransferase increased [Recovered/Resolved]
  - Alanine aminotransferase increased [Recovering/Resolving]
  - Drug interaction [Recovering/Resolving]
